FAERS Safety Report 4722650-5 (Version None)
Quarter: 2005Q3

REPORT INFORMATION
  Report Type: 
  Country: None (occurrence: None)
  Receive Date: 20050720
  Receipt Date: 20050707
  Transmission Date: 20060218
  Serious: Yes (Other)
  Sender: FDA-Public Use
  Company Number: 142557USA

PATIENT
  Sex: Female

DRUGS (2)
  1. COPAXONE [Suspect]
     Indication: MULTIPLE SCLEROSIS
  2. AVONEX [Suspect]

REACTIONS (3)
  - BREAST CANCER FEMALE [None]
  - CONVULSION [None]
  - VASCULITIS CEREBRAL [None]
